FAERS Safety Report 13707171 (Version 5)
Quarter: 2017Q4

REPORT INFORMATION
  Report Type: Report from Study
  Country: US (occurrence: US)
  Receive Date: 20170630
  Receipt Date: 20171013
  Transmission Date: 20180320
  Serious: Yes (Death, Hospitalization, Other)
  Sender: FDA-Public Use
  Company Number: US-PFIZER INC-2017279889

PATIENT
  Age: 59 Year
  Sex: Male
  Weight: 72 kg

DRUGS (4)
  1. PALBOCICLIB [Suspect]
     Active Substance: PALBOCICLIB
     Indication: OESOPHAGEAL ADENOCARCINOMA
     Dosage: 125 MG ONCE DAILY CYCLIC (FOR 21 DAYS EVERY 28 DAYS)
     Route: 048
     Dates: start: 20170506, end: 20170525
  2. HYDROCODONE [Concomitant]
     Active Substance: HYDROCODONE
  3. LORATADINE. [Concomitant]
     Active Substance: LORATADINE
  4. DOCUSATE [Concomitant]
     Active Substance: DOCUSATE

REACTIONS (7)
  - Haematuria [Not Recovered/Not Resolved]
  - Alanine aminotransferase increased [Not Recovered/Not Resolved]
  - Aspartate aminotransferase increased [Not Recovered/Not Resolved]
  - Acute kidney injury [Not Recovered/Not Resolved]
  - Death [Fatal]
  - Blood alkaline phosphatase increased [Not Recovered/Not Resolved]
  - Blood bilirubin increased [Not Recovered/Not Resolved]

NARRATIVE: CASE EVENT DATE: 20170526
